FAERS Safety Report 7319692-2 (Version None)
Quarter: 2011Q1

REPORT INFORMATION
  Report Type: 
  Country: None (occurrence: None)
  Receive Date: 20110228
  Receipt Date: 20100909
  Transmission Date: 20110831
  Serious: No
  Sender: FDA-Public Use
  Company Number: A0873458A

PATIENT
  Age: 61 Year
  Sex: Female

DRUGS (3)
  1. MULTIVITAMIN [Concomitant]
  2. FISH OIL [Concomitant]
  3. LAMICTAL [Suspect]
     Indication: BIPOLAR DISORDER
     Dosage: 25MG PER DAY
     Route: 048
     Dates: start: 20100709, end: 20100711

REACTIONS (4)
  - HEADACHE [None]
  - ADVERSE DRUG REACTION [None]
  - NAUSEA [None]
  - ABDOMINAL DISCOMFORT [None]
